FAERS Safety Report 4577725-0 (Version None)
Quarter: 2005Q1

REPORT INFORMATION
  Report Type: 
  Country: None (occurrence: None)
  Receive Date: 20050208
  Receipt Date: 20050124
  Transmission Date: 20050727
  Serious: Yes (Hospitalization)
  Sender: FDA-Public Use
  Company Number: AWBNIASPAND2004-16

PATIENT
  Age: 56 Year
  Sex: Male

DRUGS (2)
  1. NIASPAN [Suspect]
     Indication: DYSLIPIDAEMIA
     Dosage: 750 MG QD PO
     Route: 048
     Dates: start: 20040601
  2. ATORVASTATIN [Concomitant]

REACTIONS (1)
  - CIRCULATORY COLLAPSE [None]
